FAERS Safety Report 22638828 (Version 5)
Quarter: 2024Q4

REPORT INFORMATION
  Report Type: Spontaneous
  Country: PY (occurrence: PY)
  Receive Date: 20230626
  Receipt Date: 20241004
  Transmission Date: 20250115
  Serious: Yes (Hospitalization)
  Sender: NOVO NORDISK
  Company Number: PY-NOVOPROD-1081533

PATIENT
  Age: 32 Year
  Sex: Female
  Weight: 61 kg

DRUGS (2)
  1. TRESIBA [Suspect]
     Active Substance: INSULIN DEGLUDEC
     Dosage: UNK (CONTINUES WITH ANOTHER UNIT)
  2. TRESIBA [Suspect]
     Active Substance: INSULIN DEGLUDEC
     Indication: Type 1 diabetes mellitus
     Dosage: 30 OR 34 IU QD
     Route: 058
     Dates: start: 201803

REACTIONS (7)
  - Diabetes mellitus [Unknown]
  - Diabetic ketosis [Recovered/Resolved]
  - Device failure [Unknown]
  - Device issue [Unknown]
  - Dizziness [Not Recovered/Not Resolved]
  - Multiple use of single-use product [Unknown]
  - Product storage error [Unknown]

NARRATIVE: CASE EVENT DATE: 20230610
